FAERS Safety Report 7789029-3 (Version None)
Quarter: 2011Q3

REPORT INFORMATION
  Report Type: 
  Country: None (occurrence: None)
  Receive Date: 20110930
  Receipt Date: 20110920
  Transmission Date: 20111222
  Serious: Yes (Hospitalization)
  Sender: FDA-Public Use
  Company Number: DE-JNJFOC-20100801844

PATIENT
  Sex: Male
  Weight: 21.7 kg

DRUGS (6)
  1. PREDNISONE [Concomitant]
  2. REMICADE [Suspect]
     Indication: CROHN'S DISEASE
     Route: 042
     Dates: start: 20100528
  3. REMICADE [Suspect]
     Route: 042
     Dates: start: 20100709
  4. MESALAMINE [Concomitant]
     Route: 048
  5. CALCIUM CARBONATE [Concomitant]
  6. BUDESONIDE [Concomitant]

REACTIONS (2)
  - CYTOMEGALOVIRUS INFECTION [None]
  - CROHN'S DISEASE [None]
